FAERS Safety Report 9402995 (Version 1)
Quarter: 2013Q3

REPORT INFORMATION
  Report Type: Spontaneous
  Country: US (occurrence: US)
  Receive Date: 20130716
  Receipt Date: 20130716
  Transmission Date: 20140515
  Serious: Yes (Hospitalization)
  Sender: FDA-Public Use
  Company Number: US-BAYER-2013-085294

PATIENT
  Age: 28 Year
  Sex: Female

DRUGS (9)
  1. YAZ [Suspect]
  2. YASMIN [Suspect]
  3. OCELLA [Suspect]
  4. IBUPROFEN [Concomitant]
  5. OXYCODONE/APAP [Concomitant]
     Dosage: UNK
     Dates: start: 20120105
  6. ENDOCET [Concomitant]
  7. MOTRIN [Concomitant]
  8. PERCOCET [Concomitant]
  9. ATIVAN [Concomitant]

REACTIONS (2)
  - Pulmonary embolism [None]
  - Deep vein thrombosis [None]
